FAERS Safety Report 17886439 (Version 1)
Quarter: 2020Q2

REPORT INFORMATION
  Report Type: Spontaneous
  Country: MX (occurrence: MX)
  Receive Date: 20200611
  Receipt Date: 20200611
  Transmission Date: 20200714
  Serious: Yes (Other)
  Sender: FDA-Public Use
  Company Number: MX-BIOMARINAP-MX-2020-130143

PATIENT
  Age: 11 Year
  Sex: Female
  Weight: 16.5 kg

DRUGS (1)
  1. NAGLAZYME [Suspect]
     Active Substance: GALSULFASE
     Indication: MUCOPOLYSACCHARIDOSIS VI
     Dosage: 15 MILLIGRAM, QW
     Route: 042
     Dates: start: 20170711

REACTIONS (4)
  - Visual impairment [Not Recovered/Not Resolved]
  - Sleep apnoea syndrome [Not Recovered/Not Resolved]
  - Mobility decreased [Not Recovered/Not Resolved]
  - Hypoacusis [Not Recovered/Not Resolved]
